FAERS Safety Report 18923751 (Version 1)
Quarter: 2021Q1

REPORT INFORMATION
  Report Type: Spontaneous
  Country: MX (occurrence: MX)
  Receive Date: 20210222
  Receipt Date: 20210222
  Transmission Date: 20210420
  Serious: Yes (Death, Other)
  Sender: FDA-Public Use
  Company Number: MX-JNJFOC-20210236344

PATIENT
  Age: 91 Year
  Sex: Male
  Weight: 75 kg

DRUGS (1)
  1. RIVAROXABAN [Suspect]
     Active Substance: RIVAROXABAN
     Indication: PRODUCT USED FOR UNKNOWN INDICATION
     Dosage: 20 MG, QD
     Route: 048
     Dates: start: 20190409

REACTIONS (3)
  - Oxygen saturation decreased [Unknown]
  - Intentional dose omission [Unknown]
  - Death [Fatal]

NARRATIVE: CASE EVENT DATE: 20210212
